FAERS Safety Report 16904096 (Version 4)
Quarter: 2020Q2

REPORT INFORMATION
  Report Type: Spontaneous
  Country: US (occurrence: US)
  Receive Date: 20191010
  Receipt Date: 20200622
  Transmission Date: 20200713
  Serious: No
  Sender: FDA-Public Use
  Company Number: US-LEO PHARMA-325613

PATIENT
  Age: 78 Year
  Sex: Female

DRUGS (3)
  1. SKINOREN CUTANEOUS FOAM [Suspect]
     Active Substance: AZELAIC ACID
     Indication: ACNE
  2. SKINOREN CUTANEOUS FOAM [Suspect]
     Active Substance: AZELAIC ACID
     Indication: PAPULE
     Dosage: EVERY DAY OR EVERY OTHER DAY
     Route: 061
  3. SKINOREN CUTANEOUS FOAM [Suspect]
     Active Substance: AZELAIC ACID
     Indication: ERYTHEMA

REACTIONS (4)
  - Inappropriate schedule of product administration [Unknown]
  - Dry skin [Not Recovered/Not Resolved]
  - Paraesthesia [Recovered/Resolved]
  - Product physical consistency issue [Unknown]
